FAERS Safety Report 6980983-6 (Version None)
Quarter: 2010Q3

REPORT INFORMATION
  Report Type: 
  Country: None (occurrence: None)
  Receive Date: 20100914
  Receipt Date: 20100906
  Transmission Date: 20110219
  Serious: Yes (Hospitalization)
  Sender: FDA-Public Use
  Company Number: B0634772B

PATIENT
  Sex: Male
  Weight: 86 kg

DRUGS (13)
  1. MELPHALAN HYDROCHLORIDE [Suspect]
     Indication: MULTIPLE MYELOMA
     Dosage: 22MG PER DAY
     Route: 065
     Dates: start: 20090611
  2. THALIDOMIDE [Suspect]
     Indication: MULTIPLE MYELOMA
     Dosage: 200MG PER DAY
     Route: 048
     Dates: start: 20090611
  3. PREDNISONE [Suspect]
     Indication: MULTIPLE MYELOMA
     Dosage: 170MG PER DAY
     Dates: start: 20090611
  4. COKENZEN [Concomitant]
     Indication: HYPERTENSION
     Route: 048
  5. OMEPRAZOLE [Concomitant]
     Route: 048
  6. ASPIRIN [Concomitant]
     Indication: THROMBOSIS PROPHYLAXIS
     Route: 048
     Dates: start: 20090611
  7. METOCLOPRAMIDE [Concomitant]
     Route: 048
     Dates: start: 20090611
  8. LACTULOSE [Concomitant]
     Indication: CONSTIPATION
  9. NEUPOGEN [Concomitant]
     Indication: NEUTROPENIA
     Route: 058
     Dates: start: 20090904
  10. DIFFU K [Concomitant]
     Indication: VENTRICULAR EXTRASYSTOLES
     Dosage: 1800MG THREE TIMES PER DAY
     Dates: start: 20091022
  11. AMOXICILLIN [Concomitant]
     Indication: BRONCHITIS
  12. HELICIDINE [Concomitant]
     Indication: BRONCHITIS
  13. ACETAMINOPHEN [Concomitant]
     Indication: BRONCHITIS

REACTIONS (2)
  - CATARACT [None]
  - CATARACT OPERATION [None]
